FAERS Safety Report 4293191-7 (Version None)
Quarter: 2004Q1

REPORT INFORMATION
  Report Type: 
  Country: None (occurrence: None)
  Receive Date: 20040210
  Receipt Date: 20040128
  Transmission Date: 20041129
  Serious: Yes (Hospitalization, Other)
  Sender: FDA-Public Use
  Company Number: 2004006379

PATIENT
  Sex: Female

DRUGS (2)
  1. DILANTIN [Suspect]
     Indication: ANEURYSM
     Dosage: 300 MG (100 TID) ORAL
     Route: 048
  2. PHENOBARBITAL TAB [Concomitant]

REACTIONS (9)
  - ARTHRALGIA [None]
  - FALL [None]
  - HEADACHE [None]
  - JOINT SWELLING [None]
  - OEDEMA PERIPHERAL [None]
  - PAIN IN EXTREMITY [None]
  - PNEUMONIA [None]
  - WEIGHT INCREASED [None]
  - WRIST FRACTURE [None]
